FAERS Safety Report 13080415 (Version 1)
Quarter: 2017Q1

REPORT INFORMATION
  Report Type: Report from Study
  Country: RO (occurrence: RO)
  Receive Date: 20170103
  Receipt Date: 20170103
  Transmission Date: 20170428
  Serious: Yes (Death, Life-Threatening, Hospitalization, Other)
  Sender: FDA-Public Use
  Company Number: RO-GLAXOSMITHKLINE-RO2016GSK191162

PATIENT
  Age: 64 Year
  Sex: Male

DRUGS (20)
  1. DIAZEPAM. [Concomitant]
     Active Substance: DIAZEPAM
     Dosage: UNK
     Dates: start: 20160403
  2. TEOTARD [Concomitant]
     Active Substance: THEOPHYLLINE ANHYDROUS
  3. TARKA [Concomitant]
     Active Substance: TRANDOLAPRIL\VERAPAMIL HYDROCHLORIDE
     Indication: CHRONIC OBSTRUCTIVE PULMONARY DISEASE
     Dosage: 500 MG, UNK
     Route: 055
     Dates: start: 20160209, end: 20160403
  4. PREDNISONE. [Concomitant]
     Active Substance: PREDNISONE
  5. DOPAMINA [Concomitant]
     Dosage: UNK
     Dates: start: 20160403
  6. HYDROCORTISONE HEMISUCCINATE [Concomitant]
     Active Substance: HYDROCORTISONE HEMISUCCINATE
  7. SERETIDE [Concomitant]
     Active Substance: FLUTICASONE PROPIONATE\SALMETEROL XINAFOATE
     Dosage: UNK
     Dates: start: 20151223
  8. SIMVACARD [Concomitant]
     Dosage: UNK
     Dates: start: 20150701, end: 20160403
  9. ALGOCALMIN [Concomitant]
     Active Substance: METAMIZOLE SODIUM
     Dosage: UNK
     Dates: start: 20160403, end: 20160410
  10. ERDOMED [Concomitant]
     Active Substance: ERDOSTEINE
  11. FUROSEMIDE. [Concomitant]
     Active Substance: FUROSEMIDE
     Dosage: UNK
     Dates: start: 20160403, end: 20160410
  12. FENTANYL. [Concomitant]
     Active Substance: FENTANYL
     Dosage: UNK
     Dates: start: 20160403
  13. FLUCONAZOLE. [Concomitant]
     Active Substance: FLUCONAZOLE
     Dosage: UNK
     Dates: start: 20160403, end: 20160410
  14. DEXAMETASON [Concomitant]
     Active Substance: DEXAMETHASONE
  15. FRAXIPARINE [Concomitant]
     Active Substance: NADROPARIN CALCIUM
     Dosage: UNK
     Dates: start: 20160403, end: 20160410
  16. FLUTICASONE PROPIONATE. [Suspect]
     Active Substance: FLUTICASONE PROPIONATE
     Indication: CHRONIC OBSTRUCTIVE PULMONARY DISEASE
     Dosage: 500 MG, UNK
     Route: 055
     Dates: start: 20160209, end: 20160403
  17. HIDROCORTISON [Concomitant]
     Active Substance: HYDROCORTISONE
     Dosage: UNK
     Dates: start: 20160401, end: 20160403
  18. DIUREX [Concomitant]
     Active Substance: AMILORIDE HYDROCHLORIDE\HYDROCHLOROTHIAZIDE
     Dosage: UNK
     Dates: start: 20150701, end: 20160403
  19. ARNETIN [Concomitant]
     Dosage: UNK
     Dates: start: 20160403, end: 20160410
  20. PARACETAMOL [Concomitant]
     Active Substance: ACETAMINOPHEN
     Dosage: UNK
     Dates: start: 20160403, end: 20160410

REACTIONS (5)
  - Pneumothorax [Unknown]
  - Acute respiratory failure [Unknown]
  - Sepsis [Unknown]
  - Lung abscess [Fatal]
  - Pneumonia [Fatal]

NARRATIVE: CASE EVENT DATE: 20160401
